FAERS Safety Report 7179673-9 (Version None)
Quarter: 2010Q4

REPORT INFORMATION
  Report Type: 
  Country: None (occurrence: None)
  Receive Date: 20101221
  Receipt Date: 20101210
  Transmission Date: 20110411
  Serious: Yes (Hospitalization, Other)
  Sender: FDA-Public Use
  Company Number: CA-JNJCH-2010028790

PATIENT
  Age: 73 Year
  Sex: Male
  Weight: 63.5 kg

DRUGS (1)
  1. ROLAIDS [Suspect]
     Indication: VOMITING
     Dosage: TEXT:ONE TABLET ONCE
     Route: 048
     Dates: start: 20101001, end: 20101001

REACTIONS (6)
  - DRUG INEFFECTIVE FOR UNAPPROVED INDICATION [None]
  - FOREIGN BODY [None]
  - MALAISE [None]
  - OFF LABEL USE [None]
  - PRODUCT CONTAMINATION PHYSICAL [None]
  - SURGERY [None]
